FAERS Safety Report 4408624-2 (Version None)
Quarter: 2004Q3

REPORT INFORMATION
  Report Type: 
  Country: None (occurrence: None)
  Receive Date: 20040723
  Receipt Date: 20040715
  Transmission Date: 20050211
  Serious: Yes (Death, Other)
  Sender: FDA-Public Use
  Company Number: 1199844037

PATIENT
  Age: 57 Year
  Sex: Male
  Weight: 100 kg

DRUGS (15)
  1. CIPROFLOXACIN [Suspect]
     Indication: SEPSIS
     Dosage: 400 MG, TOTAL DAILY, INTRAVENOUS
     Route: 042
     Dates: start: 19981104, end: 19981107
  2. BETA-ACETYLDIGOXIN [Concomitant]
  3. AMITRIPTYLINE HCL [Concomitant]
  4. ALLOPURINOL [Concomitant]
  5. NIZATIDINE [Concomitant]
  6. MULTIVITAMIN [Concomitant]
  7. XIPAMIDE [Concomitant]
  8. FUROSEMIDE [Concomitant]
  9. ASPIRIN [Concomitant]
  10. N-AZETYLCYSTEIN [Concomitant]
  11. SUCRALFATE [Concomitant]
  12. DOPAMINE HCL [Concomitant]
  13. CORTISONE ACETATE [Concomitant]
  14. HEPARIN [Concomitant]
  15. PIPERACILLIN SODIUM W/TAZOBACTAM SODIUM [Concomitant]

REACTIONS (8)
  - ANAEMIA HAEMOLYTIC AUTOIMMUNE [None]
  - BLOOD PRESSURE ABNORMAL [None]
  - COMPLEMENT FACTOR DECREASED [None]
  - METABOLIC DISORDER [None]
  - MULTI-ORGAN FAILURE [None]
  - RENAL FAILURE [None]
  - SEPTIC SHOCK [None]
  - TACHYARRHYTHMIA [None]
